FAERS Safety Report 4490509-7 (Version None)
Quarter: 2004Q4

REPORT INFORMATION
  Report Type: 
  Country: None (occurrence: None)
  Receive Date: 20041028
  Receipt Date: 20041013
  Transmission Date: 20050328
  Serious: Yes (Hospitalization)
  Sender: FDA-Public Use
  Company Number: 2004AP05324

PATIENT
  Age: 67 Year
  Sex: Male

DRUGS (10)
  1. IRESSA [Suspect]
     Indication: NON-SMALL CELL LUNG CANCER
     Dosage: 250 MG DAILY PO
     Route: 048
     Dates: start: 20040929, end: 20041013
  2. MUCOSTA [Suspect]
     Indication: GASTROINTESTINAL DISORDER
     Dosage: 300 MG DAILY PO
     Route: 048
     Dates: start: 20041002, end: 20041013
  3. OXYUCONTIN [Concomitant]
  4. ZYRTEC [Concomitant]
  5. MYSLEE [Concomitant]
  6. NAIXAN [Concomitant]
  7. ARASENA A [Concomitant]
  8. HIBIDIL [Concomitant]
  9. GEMCITABINE [Concomitant]
  10. VINORELBINE [Concomitant]

REACTIONS (11)
  - ANOREXIA [None]
  - BLOOD AMYLASE INCREASED [None]
  - FAECES DISCOLOURED [None]
  - GASTRIC PH DECREASED [None]
  - GASTROINTESTINAL ULCER PERFORATION [None]
  - HERPES VIRUS INFECTION [None]
  - INSOMNIA [None]
  - MARKEDLY REDUCED DIETARY INTAKE [None]
  - PLATELET COUNT DECREASED [None]
  - RED BLOOD CELL COUNT DECREASED [None]
  - WHITE BLOOD CELL COUNT DECREASED [None]
